FAERS Safety Report 11753902 (Version 2)
Quarter: 2015Q4

REPORT INFORMATION
  Report Type: Spontaneous
  Country: AU (occurrence: AU)
  Receive Date: 20151119
  Receipt Date: 20151126
  Transmission Date: 20160304
  Serious: Yes (Other)
  Sender: FDA-Public Use
  Company Number: AU-BEH-2015055861

PATIENT
  Age: 75 Year
  Sex: Female
  Weight: 62.9 kg

DRUGS (4)
  1. PRIVIGEN [Suspect]
     Active Substance: HUMAN IMMUNOGLOBULIN G
     Indication: BACTERIAL INFECTION
     Dosage: INFUSION RATE 0.6MG/KG/HR
     Dates: start: 20151116, end: 20151116
  2. PRIVIGEN [Suspect]
     Active Substance: HUMAN IMMUNOGLOBULIN G
     Indication: NON-HODGKIN^S LYMPHOMA
     Dosage: INFUSION RATE 0.3MG/KG/HR
     Dates: start: 20151116, end: 20151116
  3. PRIVIGEN [Suspect]
     Active Substance: HUMAN IMMUNOGLOBULIN G
     Indication: BLOOD IMMUNOGLOBULIN G DECREASED
     Dosage: DOSE: 25G
     Dates: start: 20151116, end: 20151116
  4. PRIVIGEN [Suspect]
     Active Substance: HUMAN IMMUNOGLOBULIN G
     Indication: BACTERIAL INFECTION
     Dosage: INFUSION RATE 0.3MG/KG/HR
     Dates: start: 20151116, end: 20151116

REACTIONS (8)
  - Tachycardia [Recovered/Resolved]
  - Chills [Recovered/Resolved]
  - Blood pressure systolic decreased [Recovered/Resolved]
  - Pyrexia [Recovered/Resolved]
  - Body temperature increased [Recovered/Resolved]
  - Respiratory distress [Recovered/Resolved]
  - Respiratory rate increased [Recovered/Resolved]
  - Hypertension [Recovered/Resolved]

NARRATIVE: CASE EVENT DATE: 20151116
